FAERS Safety Report 16901399 (Version 2)
Quarter: 2022Q3

REPORT INFORMATION
  Report Type: Report from Study
  Country: NL (occurrence: NL)
  Receive Date: 20191009
  Receipt Date: 20220810
  Transmission Date: 20221027
  Serious: Yes (Hospitalization)
  Sender: FDA-Public Use
  Company Number: NL-AMGEN-NLDSL2019144060

PATIENT
  Age: 63 Year
  Sex: Female

DRUGS (6)
  1. XGEVA [Suspect]
     Active Substance: DENOSUMAB
     Indication: Prophylaxis
     Dosage: 120 MILLIGRAM PER MILLILITRE/1.7 ML, Q4WK
     Route: 058
  2. XGEVA [Suspect]
     Active Substance: DENOSUMAB
     Dosage: 120 MILLIGRAM PER MILLILITRE/1.7 ML, Q4WK
     Route: 058
  3. CALCIUM CARBONATE\VITAMIN D [Concomitant]
     Active Substance: CALCIUM CARBONATE\VITAMIN D
     Dosage: 1000 MILLIGRAM, QD, 2.5G/880IE
  4. FULVESTRANT [Concomitant]
     Active Substance: FULVESTRANT
     Dosage: UNK UNK, Q4WK,250MG=5ML (50MG/ML) 2 INJ PER 4 WEEKS
  5. PALBOCICLIB [Concomitant]
     Active Substance: PALBOCICLIB
     Dosage: 125 MILLIGRAM, QD
  6. OXAZEPAM [Concomitant]
     Active Substance: OXAZEPAM
     Dosage: 10 MILLIGRAM (ACCORDING PRESCRIPTION)

REACTIONS (4)
  - Dehydration [Unknown]
  - Diarrhoea [Unknown]
  - Fatigue [Recovering/Resolving]
  - Disease progression [Not Recovered/Not Resolved]

NARRATIVE: CASE EVENT DATE: 20190101
